FAERS Safety Report 17499757 (Version 2)
Quarter: 2020Q1

REPORT INFORMATION
  Report Type: Spontaneous
  Country: US (occurrence: US)
  Receive Date: 20200304
  Receipt Date: 20200313
  Transmission Date: 20200409
  Serious: Yes (Death, Hospitalization, Other)
  Sender: FDA-Public Use
  Company Number: US-BAXTER-2020BAX004537

PATIENT
  Age: 5 Decade
  Sex: Male
  Weight: 75.6 kg

DRUGS (5)
  1. CYTARABINE. [Suspect]
     Active Substance: CYTARABINE
     Indication: HIGH-GRADE B-CELL LYMPHOMA
     Dosage: EVERY 12 HOURS, 4 PER CYCLE
     Route: 065
  2. IFOSFAMIDE FOR INJECTION [Suspect]
     Active Substance: IFOSFAMIDE
     Indication: HIGH-GRADE B-CELL LYMPHOMA
     Dosage: IVPB DAILY, 5 PER CYCLE
     Route: 041
     Dates: start: 201711
  3. ETOPOSIDE. [Suspect]
     Active Substance: ETOPOSIDE
     Indication: HIGH-GRADE B-CELL LYMPHOMA
     Dosage: IVPB DAILY, 5 PER CYCLE
     Route: 041
     Dates: start: 201711
  4. METHOTREXATE. [Suspect]
     Active Substance: METHOTREXATE
     Indication: HIGH-GRADE B-CELL LYMPHOMA
     Dosage: DURATION: 170 DAYS STARTED PRIOR TO AND CONTINUED AFTER IVAC, 1 PER CYCLE
     Route: 037
     Dates: start: 201711
  5. METHOTREXATE. [Suspect]
     Active Substance: METHOTREXATE
     Route: 065
     Dates: start: 2017

REACTIONS (8)
  - Respiratory failure [Unknown]
  - Viral infection [Unknown]
  - Escherichia bacteraemia [Unknown]
  - Thrombocytopenia [Not Recovered/Not Resolved]
  - Subarachnoid haemorrhage [Unknown]
  - Pneumonia bacterial [Unknown]
  - Febrile neutropenia [Unknown]
  - Sepsis [Unknown]

NARRATIVE: CASE EVENT DATE: 2017
